FAERS Safety Report 5742012-1 (Version None)
Quarter: 2008Q2

REPORT INFORMATION
  Report Type: 
  Country: None (occurrence: None)
  Receive Date: 20080519
  Receipt Date: 20080508
  Transmission Date: 20081010
  Serious: Yes (Hospitalization)
  Sender: FDA-Public Use
  Company Number: CG-MERCK-0805USA01859

PATIENT
  Sex: Female

DRUGS (1)
  1. STROMECTOL [Suspect]
     Route: 048
     Dates: start: 20071011, end: 20071011

REACTIONS (4)
  - AGITATION [None]
  - COMA [None]
  - FEELING COLD [None]
  - LOGORRHOEA [None]
